FAERS Safety Report 17851863 (Version 1)
Quarter: 2020Q2

REPORT INFORMATION
  Report Type: Spontaneous
  Country: US (occurrence: US)
  Receive Date: 20200602
  Receipt Date: 20200602
  Transmission Date: 20200714
  Serious: Yes (Other)
  Sender: FDA-Public Use
  Company Number: NVSC2020US150370

PATIENT

DRUGS (2)
  1. PAZOPANIB [Suspect]
     Active Substance: PAZOPANIB
     Indication: HEAD AND NECK CANCER
     Dosage: 400 MG, QD
     Route: 048
  2. TEMSIROLIMUS. [Suspect]
     Active Substance: TEMSIROLIMUS
     Indication: HEAD AND NECK CANCER
     Dosage: 15 MG, QW
     Route: 042

REACTIONS (3)
  - Product use in unapproved indication [Unknown]
  - Head and neck cancer [Unknown]
  - Malignant neoplasm progression [Unknown]
